FAERS Safety Report 24303120 (Version 3)
Quarter: 2024Q4

REPORT INFORMATION
  Report Type: Spontaneous
  Country: US (occurrence: US)
  Receive Date: 20240910
  Receipt Date: 20241021
  Transmission Date: 20250114
  Serious: No
  Sender: GLAXOSMITHKLINE
  Company Number: US-GSK-US2024AMR109664

PATIENT
  Age: 85 Year
  Sex: Female

DRUGS (2)
  1. TRELEGY ELLIPTA [Suspect]
     Active Substance: FLUTICASONE FUROATE\UMECLIDINIUM BROMIDE\VILANTEROL TRIFENATATE
     Indication: Product used for unknown indication
     Dosage: UNK,100/62.5/25 MCG
  2. OXYGEN [Concomitant]
     Active Substance: OXYGEN
     Indication: Product used for unknown indication
     Dosage: UNK

REACTIONS (5)
  - Oral candidiasis [Unknown]
  - Wrist fracture [Unknown]
  - Memory impairment [Unknown]
  - Oropharyngeal candidiasis [Unknown]
  - Product complaint [Unknown]

NARRATIVE: CASE EVENT DATE: 20240601
